FAERS Safety Report 8841604 (Version 3)
Quarter: 2013Q3

REPORT INFORMATION
  Report Type: Report from Study
  Country: JP (occurrence: JP)
  Receive Date: 20121015
  Receipt Date: 20130723
  Transmission Date: 20140515
  Serious: Yes (Hospitalization, Other)
  Sender: FDA-Public Use
  Company Number: JP-VERTEX PHARMACEUTICAL INC.-AE-2012-009273

PATIENT
  Age: 74 Year
  Sex: Male

DRUGS (9)
  1. VX-950 (TELAPREVIR) [Suspect]
     Indication: CHRONIC HEPATITIS C
     Dosage: 1500 MG, QD
     Route: 048
     Dates: start: 20120307, end: 20120514
  2. RIBAVIRIN [Suspect]
     Indication: CHRONIC HEPATITIS C
     Dosage: 400 MG, QD
     Route: 048
     Dates: start: 20120307, end: 20120322
  3. RIBAVIRIN [Suspect]
     Dosage: 200 MG, QD
     Route: 048
     Dates: start: 20120323, end: 20120521
  4. RIBAVIRIN [Suspect]
     Dosage: 100 MG, QD
     Route: 048
     Dates: start: 20120522, end: 20120525
  5. RIBAVIRIN [Suspect]
     Dosage: 200 MG, QD
     Route: 048
     Dates: start: 20120612
  6. PEGINTERFERON ALFA-2B [Suspect]
     Indication: CHRONIC HEPATITIS C
     Dosage: 1.3 ?G/KG, QW
     Route: 058
     Dates: start: 20120307
  7. PROHEPARUM [Concomitant]
     Dosage: 6 DF, QD
     Route: 048
     Dates: end: 20120424
  8. ADALAT [Concomitant]
     Dosage: 10 MG, QD
     Route: 048
     Dates: start: 20120724
  9. URSO [Concomitant]
     Dosage: 300 MG, QD
     Route: 048
     Dates: end: 20120424

REACTIONS (2)
  - Renal impairment [Recovered/Resolved]
  - Emphysema [Recovered/Resolved]
